FAERS Safety Report 6283304-X (Version None)
Quarter: 2009Q3

REPORT INFORMATION
  Report Type: 
  Country: None (occurrence: None)
  Receive Date: 20090724
  Receipt Date: 20090123
  Transmission Date: 20100115
  Serious: No
  Sender: FDA-Public Use
  Company Number: US-AMGEN-KDL330299

PATIENT
  Sex: Female
  Weight: 88.1 kg

DRUGS (11)
  1. PROCRIT [Suspect]
     Indication: RENAL FAILURE CHRONIC
     Dates: start: 20080501, end: 20090101
  2. LASIX [Suspect]
  3. NIFEDIPINE [Concomitant]
  4. ASPIRIN [Concomitant]
  5. ROCALTROL [Concomitant]
  6. TRIAMCINOLONE [Concomitant]
  7. ZETIA [Concomitant]
  8. LOVASTATIN [Concomitant]
  9. DILTIAZEM [Concomitant]
  10. METOPROLOL SUCCINATE [Concomitant]
  11. EZETIMIBE [Concomitant]

REACTIONS (2)
  - HYPERSENSITIVITY [None]
  - PEMPHIGOID [None]
